FAERS Safety Report 4950124-5 (Version None)
Quarter: 2006Q1

REPORT INFORMATION
  Report Type: 
  Country: None (occurrence: None)
  Receive Date: 20060315
  Receipt Date: 20060228
  Transmission Date: 20060701
  Serious: Yes (Death, Life-Threatening)
  Sender: FDA-Public Use
  Company Number: 2005JP002452

PATIENT
  Age: 70 Year
  Sex: Male
  Weight: 39 kg

DRUGS (7)
  1. FUNGUARD (MICAFUNGIN INJECTION) [Suspect]
     Indication: BRONCHOPULMONARY ASPERGILLOSIS
     Dosage: 100 MG, UID/QD, IV DRIP
     Route: 041
     Dates: start: 20050531, end: 20050605
  2. VANCOMYCIN [Suspect]
     Dosage: 2 G, IV NOS
     Route: 042
     Dates: start: 20050520, end: 20050602
  3. CORTRIL [Suspect]
     Indication: ADRENAL INSUFFICIENCY
     Dosage: 20 MG, ORAL
     Route: 048
     Dates: start: 20050615, end: 20050713
  4. SAXIZON (HYDROCORTISONE SODIUM SUCCINATE) INJECTION [Suspect]
     Indication: ADRENAL INSUFFICIENCY
     Dosage: 200 MG, IV NOS
     Route: 042
     Dates: start: 20050613, end: 20050614
  5. GASTER [Concomitant]
  6. CIBENOL (CIBENZOLINE SUCCINATE) [Concomitant]
  7. LASIX [Concomitant]

REACTIONS (9)
  - ADRENAL INSUFFICIENCY [None]
  - ALANINE AMINOTRANSFERASE INCREASED [None]
  - ASPARTATE AMINOTRANSFERASE INCREASED [None]
  - DEPRESSED LEVEL OF CONSCIOUSNESS [None]
  - HEPATIC FUNCTION ABNORMAL [None]
  - HYPOGLYCAEMIA [None]
  - LUNG NEOPLASM MALIGNANT [None]
  - NEUTROPHIL COUNT INCREASED [None]
  - WHITE BLOOD CELL COUNT INCREASED [None]
